FAERS Safety Report 9474700 (Version 2)
Quarter: 2013Q3

REPORT INFORMATION
  Report Type: Spontaneous
  Country: IE (occurrence: IE)
  Receive Date: 20130823
  Receipt Date: 20130920
  Transmission Date: 20140515
  Serious: Yes (Death, Hospitalization)
  Sender: FDA-Public Use
  Company Number: IE-ASTRAZENECA-2013SE64633

PATIENT
  Age: 49 Year
  Sex: Male

DRUGS (4)
  1. CRESTOR [Suspect]
     Route: 048
  2. SIMVASTATIN [Suspect]
     Route: 065
  3. UNSPECIFIED GENERIC [Suspect]
     Route: 065
  4. HALCION [Concomitant]

REACTIONS (18)
  - Pancreatitis necrotising [Fatal]
  - Left ventricular hypertrophy [Fatal]
  - Acute respiratory distress syndrome [Fatal]
  - Renal failure acute [Fatal]
  - Tachycardia [Fatal]
  - Vomiting [Fatal]
  - Abdominal distension [Fatal]
  - Abdominal pain upper [Fatal]
  - Agitation [Fatal]
  - Confusional state [Fatal]
  - Disorientation [Fatal]
  - Rhabdomyolysis [Fatal]
  - Ascites [Fatal]
  - Nausea [Fatal]
  - Venous thrombosis [Fatal]
  - Body temperature increased [Fatal]
  - C-reactive protein increased [Fatal]
  - Retroperitoneal haemorrhage [Fatal]
